FAERS Safety Report 13386245 (Version 1)
Quarter: 2017Q1

REPORT INFORMATION
  Report Type: Spontaneous
  Country: PT (occurrence: PT)
  Receive Date: 20170330
  Receipt Date: 20170330
  Transmission Date: 20170429
  Serious: Yes (Other)
  Sender: FDA-Public Use
  Company Number: PT-GILEAD-2015-0185109

PATIENT
  Age: 64 Year
  Sex: Female
  Weight: 50 kg

DRUGS (8)
  1. IBANDRONATE [Concomitant]
     Active Substance: IBANDRONATE SODIUM
  2. PERINDOPRIL [Concomitant]
     Active Substance: PERINDOPRIL
  3. PITAVASTATIN [Concomitant]
     Active Substance: PITAVASTATIN
  4. ATRIPLA [Suspect]
     Active Substance: EFAVIRENZ\EMTRICITABINE\TENOFOVIR DISOPROXIL FUMARATE
     Indication: HIV INFECTION
     Route: 065
  5. AAS [Concomitant]
     Active Substance: ASPIRIN
  6. VITAMIN D2 + CALCIUM               /07511201/ [Concomitant]
  7. DARUNAVIR W/RITONAVIR [Concomitant]
     Active Substance: DARUNAVIR\RITONAVIR
  8. FLUVASTATIN [Concomitant]
     Active Substance: FLUVASTATIN SODIUM

REACTIONS (2)
  - Lumbar vertebral fracture [Unknown]
  - Arthralgia [Unknown]

NARRATIVE: CASE EVENT DATE: 2010
